FAERS Safety Report 23828303 (Version 1)
Quarter: 2024Q2

REPORT INFORMATION
  Report Type: Report from Study
  Country: EG (occurrence: EG)
  Receive Date: 20240508
  Receipt Date: 20240508
  Transmission Date: 20240715
  Serious: Yes (Life-Threatening, Other)
  Sender: FDA-Public Use
  Company Number: EG-002147023-NVSC2023EG178396

PATIENT
  Age: 27 Year
  Sex: Female

DRUGS (5)
  1. DICLOFENAC POTASSIUM [Suspect]
     Active Substance: DICLOFENAC POTASSIUM
     Indication: Analgesic therapy
     Dosage: STRENGTH: 150 MG; UNK, PRN (ANALGESIC)
     Route: 048
  2. DICLOFENAC POTASSIUM [Suspect]
     Active Substance: DICLOFENAC POTASSIUM
     Dosage: STRENGTH: 150 MG; UNK, PRN (3 YEARS AGO) (ANALGESIC)
     Route: 048
     Dates: start: 2020, end: 20230714
  3. VOLTAREN [Concomitant]
     Active Substance: DICLOFENAC SODIUM
     Indication: Analgesic therapy
     Dosage: UNK (ALMOST 2019 OR 2020) (TABLET OR INJECTION)
     Route: 065
  4. COSENTYX [Suspect]
     Active Substance: SECUKINUMAB
     Indication: Ankylosing spondylitis
     Dosage: 150 MG, QMO (1 PEN EVERY MONTH WITHOUT LOADING) (FOR TOTAL OF 4 OR 6 MONTHS AS PER THE REPORTER^S...
     Route: 058
     Dates: start: 20230714, end: 20230914
  5. COSENTYX SENSO-READY PEN (SECUKINUMAB) [Concomitant]
     Indication: Product used for unknown indication

REACTIONS (10)
  - Ankylosing spondylitis [Not Recovered/Not Resolved]
  - Off label use [Unknown]
  - Movement disorder [Not Recovered/Not Resolved]
  - Product dispensing issue [Not Recovered/Not Resolved]
  - Fatigue [Not Recovered/Not Resolved]
  - Drug ineffective [Not Recovered/Not Resolved]
  - Back disorder [Not Recovered/Not Resolved]
  - Back pain [Not Recovered/Not Resolved]
  - Abdominal pain upper [Not Recovered/Not Resolved]
  - Feeling abnormal [Not Recovered/Not Resolved]

NARRATIVE: CASE EVENT DATE: 20200101
